FAERS Safety Report 5714135-4 (Version None)
Quarter: 2008Q2

REPORT INFORMATION
  Report Type: 
  Country: None (occurrence: None)
  Receive Date: 20080423
  Receipt Date: 20080417
  Transmission Date: 20081010
  Serious: Yes (Death)
  Sender: FDA-Public Use
  Company Number: PHEH2008US03861

PATIENT
  Sex: Male

DRUGS (1)
  1. EXJADE [Suspect]

REACTIONS (5)
  - DEATH [None]
  - DIARRHOEA [None]
  - HEADACHE [None]
  - MYALGIA [None]
  - NAUSEA [None]
